FAERS Safety Report 7372181-1 (Version None)
Quarter: 2011Q1

REPORT INFORMATION
  Report Type: 
  Country: None (occurrence: None)
  Receive Date: 20110225
  Receipt Date: 20101130
  Transmission Date: 20110831
  Serious: No
  Sender: FDA-Public Use
  Company Number: 319358

PATIENT
  Sex: Male

DRUGS (3)
  1. VICTOZA [Suspect]
     Indication: PRODUCT USED FOR UNKNOWN INDICATION
     Dosage: 1.2 MG, QD, SUBCUTANEOUS, 0.6 MG, QD, SUBCUTANEOUS, 0.6 MG, QD, SUBCUTANEOUS
     Route: 058
     Dates: start: 20101130
  2. VICTOZA [Suspect]
     Indication: PRODUCT USED FOR UNKNOWN INDICATION
     Dosage: 1.2 MG, QD, SUBCUTANEOUS, 0.6 MG, QD, SUBCUTANEOUS, 0.6 MG, QD, SUBCUTANEOUS
     Route: 058
     Dates: start: 20101121, end: 20101126
  3. VICTOZA [Suspect]
     Indication: PRODUCT USED FOR UNKNOWN INDICATION
     Dosage: 1.2 MG, QD, SUBCUTANEOUS, 0.6 MG, QD, SUBCUTANEOUS, 0.6 MG, QD, SUBCUTANEOUS
     Route: 058
     Dates: start: 20101127

REACTIONS (8)
  - BLOOD GLUCOSE DECREASED [None]
  - HYPERHIDROSIS [None]
  - HEADACHE [None]
  - CHEST PAIN [None]
  - HEPATIC ENZYME INCREASED [None]
  - VOMITING [None]
  - FATIGUE [None]
  - NAUSEA [None]
